FAERS Safety Report 24436835 (Version 1)
Quarter: 2024Q4

REPORT INFORMATION
  Report Type: Spontaneous
  Country: GB (occurrence: GB)
  Receive Date: 20241015
  Receipt Date: 20241015
  Transmission Date: 20250114
  Serious: Yes (Other)
  Sender: DEXCEL
  Company Number: None

PATIENT
  Age: 72 Year
  Sex: Female
  Weight: 65 kg

DRUGS (2)
  1. OMEPRAZOLE [Suspect]
     Active Substance: OMEPRAZOLE
     Dosage: 20MG OD
     Dates: start: 20241004, end: 20241009
  2. CYCLIZINE [Concomitant]
     Active Substance: CYCLIZINE

REACTIONS (1)
  - Hyponatraemia [Recovering/Resolving]
